FAERS Safety Report 10094035 (Version 1)
Quarter: 2014Q2

REPORT INFORMATION
  Report Type: Spontaneous
  Country: FR (occurrence: FR)
  Receive Date: 20140422
  Receipt Date: 20140422
  Transmission Date: 20141212
  Serious: Yes (Hospitalization)
  Sender: FDA-Public Use
  Company Number: FR-ROCHE-1386832

PATIENT
  Age: 71 Year
  Sex: Male

DRUGS (6)
  1. AVASTIN [Suspect]
     Indication: LUNG ADENOCARCINOMA
     Dosage: 25MG/ML
     Route: 042
     Dates: start: 201109, end: 20130521
  2. PLAVIX [Concomitant]
  3. LOXEN [Concomitant]
  4. TAMSULOSINE [Concomitant]
  5. ESOMEPRAZOLE [Concomitant]
  6. LEXOMIL [Concomitant]
     Route: 065

REACTIONS (5)
  - Disorientation [Recovered/Resolved]
  - Psychomotor skills impaired [Recovered/Resolved]
  - Headache [Recovered/Resolved]
  - Confusional state [Recovered/Resolved]
  - Aphasia [Recovered/Resolved]
